FAERS Safety Report 13682336 (Version 1)
Quarter: 2017Q2

REPORT INFORMATION
  Report Type: Spontaneous
  Country: FR (occurrence: FR)
  Receive Date: 20170623
  Receipt Date: 20170623
  Transmission Date: 20170830
  Serious: Yes (Other)
  Sender: FDA-Public Use
  Company Number: FR-BAYER-2017-119460

PATIENT
  Age: 38 Year
  Sex: Female

DRUGS (2)
  1. MIRENA [Suspect]
     Active Substance: LEVONORGESTREL
     Indication: CONTRACEPTION
     Dosage: 20 MCG/24HR, CONT
     Route: 015
     Dates: start: 201512
  2. MIRENA [Suspect]
     Active Substance: LEVONORGESTREL
     Indication: CONTRACEPTION
     Dosage: 20 MCG/24HR, CONT
     Route: 015
     Dates: start: 20090624

REACTIONS (29)
  - Aggression [Recovering/Resolving]
  - Genital paraesthesia [Recovering/Resolving]
  - Depression [Recovering/Resolving]
  - Memory impairment [Recovering/Resolving]
  - Visual acuity reduced [Recovering/Resolving]
  - Nasal discomfort [Recovering/Resolving]
  - Breast pain [Recovering/Resolving]
  - Weight increased [Recovering/Resolving]
  - Abdominal pain [Recovering/Resolving]
  - Aphthous ulcer [Recovering/Resolving]
  - Night sweats [Recovering/Resolving]
  - Fatigue [Recovering/Resolving]
  - Abnormal sensation in eye [Recovering/Resolving]
  - Hirsutism [Recovering/Resolving]
  - Arthralgia [Recovering/Resolving]
  - Myalgia [Recovering/Resolving]
  - Irritability [Recovering/Resolving]
  - Migraine [Recovering/Resolving]
  - Musculoskeletal stiffness [Recovering/Resolving]
  - Sleep disorder [Recovering/Resolving]
  - Tendonitis [Recovering/Resolving]
  - Aphasia [Recovering/Resolving]
  - Pelvic pain [Recovering/Resolving]
  - Anxiety [Recovering/Resolving]
  - Feeling cold [Recovering/Resolving]
  - Alopecia [Recovering/Resolving]
  - Loss of libido [Recovering/Resolving]
  - Vertigo [Recovering/Resolving]
  - Discomfort [Recovering/Resolving]
